FAERS Safety Report 19190946 (Version 2)
Quarter: 2021Q2

REPORT INFORMATION
  Report Type: Report from Study
  Country: None (occurrence: US)
  Receive Date: 20210428
  Receipt Date: 20210501
  Transmission Date: 20210717
  Serious: Yes (Hospitalization)
  Sender: FDA-Public Use
  Company Number: US-ABBVIE-21K-163-3871559-00

PATIENT
  Age: 39 Year
  Sex: Female
  Weight: 88.08 kg

DRUGS (2)
  1. HUMIRA [Suspect]
     Active Substance: ADALIMUMAB
     Indication: RHEUMATOID ARTHRITIS
  2. HUMIRA [Suspect]
     Active Substance: ADALIMUMAB
     Indication: CROHN^S DISEASE
     Route: 058
     Dates: start: 202005, end: 20210131

REACTIONS (8)
  - Product prescribing error [Unknown]
  - Arthritis [Unknown]
  - Breast oedema [Unknown]
  - Pain [Unknown]
  - Therapeutic response unexpected [Unknown]
  - Mastitis [Recovering/Resolving]
  - Breast swelling [Unknown]
  - Gastric disorder [Unknown]

NARRATIVE: CASE EVENT DATE: 20201231
